FAERS Safety Report 7081112-3 (Version None)
Quarter: 2010Q4

REPORT INFORMATION
  Report Type: 
  Country: None (occurrence: None)
  Receive Date: 20101103
  Receipt Date: 20101026
  Transmission Date: 20110411
  Serious: Yes (Death)
  Sender: FDA-Public Use
  Company Number: A0890069A

PATIENT
  Age: 62 Year
  Sex: Female
  Weight: 81.4 kg

DRUGS (15)
  1. VOTRIENT [Suspect]
     Indication: RENAL CANCER METASTATIC
     Dosage: 400MG PER DAY
     Route: 048
  2. CHOLECALCIFEROL [Concomitant]
  3. EFFEXOR [Concomitant]
  4. FENTANYL [Concomitant]
  5. FLUDROCORTISONE [Concomitant]
  6. FOLIC ACID [Concomitant]
  7. GRANISETRON HCL [Concomitant]
  8. HYDROCORTISONE [Concomitant]
  9. HYDROMORPHONE HCL [Concomitant]
  10. LAMICTAL [Concomitant]
  11. MIRALAX [Concomitant]
  12. AFINITOR [Concomitant]
  13. OMEPRAZOLE [Concomitant]
  14. OXYCONTIN [Concomitant]
  15. PERIDEX [Concomitant]

REACTIONS (8)
  - BLOOD POTASSIUM ABNORMAL [None]
  - DEATH [None]
  - DIZZINESS [None]
  - ELECTROLYTE IMBALANCE [None]
  - FATIGUE [None]
  - HAEMOLYSIS [None]
  - HEPATIC ENZYME INCREASED [None]
  - ORAL PAIN [None]
